FAERS Safety Report 18058366 (Version 1)
Quarter: 2020Q3

REPORT INFORMATION
  Report Type: Report from Study
  Country: IT (occurrence: IT)
  Receive Date: 20200723
  Receipt Date: 20200723
  Transmission Date: 20201103
  Serious: Yes (Hospitalization)
  Sender: FDA-Public Use
  Company Number: IT-MYLANLABS-2020M1066505

PATIENT
  Age: 59 Year
  Sex: Female

DRUGS (2)
  1. ATENOLOL. [Suspect]
     Active Substance: ATENOLOL
     Indication: PALPITATIONS
     Dosage: 700 MILLIGRAM, TOTAL
     Route: 048
     Dates: start: 20200608, end: 20200608
  2. ACETYLSALICYLIC ACID W/ASCORBIC ACID [Suspect]
     Active Substance: ACETAMINOPHEN\ASCORBIC ACID
     Indication: ARTHRALGIA
     Dosage: 1000 MILLIGRAM, TOTAL
     Route: 048
     Dates: start: 20200608, end: 20200608

REACTIONS (4)
  - Intentional self-injury [Recovering/Resolving]
  - Transaminases increased [Recovering/Resolving]
  - Drug abuse [Recovering/Resolving]
  - Cardiotoxicity [Recovering/Resolving]

NARRATIVE: CASE EVENT DATE: 20200608
